FAERS Safety Report 18660611 (Version 1)
Quarter: 2020Q4

REPORT INFORMATION
  Report Type: Spontaneous
  Country: US (occurrence: US)
  Receive Date: 20201223
  Receipt Date: 20201223
  Transmission Date: 20210114
  Serious: No
  Sender: FDA-Public Use
  Company Number: US-RECORDATI RARE DISEASES-2103442

PATIENT
  Age: 52 Year
  Sex: Female

DRUGS (2)
  1. ISTURISA [Suspect]
     Active Substance: OSILODROSTAT PHOSPHATE
  2. ISTURISA [Suspect]
     Active Substance: OSILODROSTAT PHOSPHATE
     Indication: PITUITARY-DEPENDENT CUSHING^S SYNDROME
     Dates: start: 202009

REACTIONS (10)
  - Myalgia [Unknown]
  - Irritability [Unknown]
  - Hypotension [Unknown]
  - Salt craving [Unknown]
  - Arthralgia [Unknown]
  - Fatigue [Unknown]
  - Headache [Unknown]
  - Thirst [Unknown]
  - Dizziness [Unknown]
  - Hunger [Unknown]
